FAERS Safety Report 13178887 (Version 3)
Quarter: 2017Q3

REPORT INFORMATION
  Report Type: Spontaneous
  Country: US (occurrence: US)
  Receive Date: 20170202
  Receipt Date: 20170720
  Transmission Date: 20171127
  Serious: No
  Sender: FDA-Public Use
  Company Number: US-PFIZER INC-2016571445

PATIENT
  Age: 74 Year
  Sex: Female

DRUGS (1)
  1. IBRANCE [Suspect]
     Active Substance: PALBOCICLIB
     Indication: BREAST CANCER
     Dosage: 100 MG, CYCLIC (DAILY)
     Route: 048
     Dates: start: 20160920

REACTIONS (4)
  - Fatigue [Unknown]
  - Constipation [Unknown]
  - Nausea [Unknown]
  - Laziness [Unknown]

NARRATIVE: CASE EVENT DATE: 20170127
